FAERS Safety Report 11208214 (Version 1)
Quarter: 2015Q2

REPORT INFORMATION
  Report Type: Spontaneous
  Country: US (occurrence: None)
  Receive Date: 20150619
  Receipt Date: 20150619
  Transmission Date: 20150821
  Serious: Yes (Other)
  Sender: FDA-Public Use
  Company Number: None

PATIENT
  Age: 42 Year
  Sex: Male
  Weight: 99.79 kg

DRUGS (8)
  1. PURITAN^S PRIDE [Concomitant]
  2. VARENICLINE [Suspect]
     Active Substance: VARENICLINE
     Indication: SMOKING CESSATION THERAPY
     Dosage: TAKEN BY MOUTH
     Dates: start: 20150607, end: 20150611
  3. DIAZEPAM. [Concomitant]
     Active Substance: DIAZEPAM
  4. B-COMPLEX WITH C [Concomitant]
  5. GABAPENTIN. [Concomitant]
     Active Substance: GABAPENTIN
  6. MORPHINE SULFATE. [Suspect]
     Active Substance: MORPHINE SULFATE
     Indication: SPINAL PAIN
     Dosage: TAKEN BY MOUTH
  7. CARISOPRODOL. [Concomitant]
     Active Substance: CARISOPRODOL
  8. MORPHINE SULFATE. [Concomitant]
     Active Substance: MORPHINE SULFATE

REACTIONS (3)
  - Pain [None]
  - Drug ineffective [None]
  - Drug interaction [None]

NARRATIVE: CASE EVENT DATE: 20150610
